FAERS Safety Report 8577665-6 (Version None)
Quarter: 2012Q3

REPORT INFORMATION
  Report Type: 
  Country: None (occurrence: None)
  Receive Date: 20120807
  Receipt Date: 20120802
  Transmission Date: 20120928
  Serious: Yes (Life-Threatening)
  Sender: FDA-Public Use
  Company Number: FR-ROCHE-1097094

PATIENT
  Age: 84 Year
  Sex: Male
  Weight: 74 kg

DRUGS (1)
  1. MIRCERA [Suspect]
     Indication: NEPHROGENIC ANAEMIA
     Dates: start: 20110728, end: 20111001

REACTIONS (1)
  - THROMBOCYTOPENIA [None]
